FAERS Safety Report 23538049 (Version 1)
Quarter: 2024Q1

REPORT INFORMATION
  Report Type: Spontaneous
  Country: US (occurrence: US)
  Receive Date: 20240219
  Receipt Date: 20240219
  Transmission Date: 20240410
  Serious: No
  Sender: FDA-Public Use
  Company Number: US-BRISTOL-MYERS SQUIBB COMPANY-2024-026629

PATIENT
  Age: 77 Year
  Sex: Female

DRUGS (1)
  1. POMALYST [Suspect]
     Active Substance: POMALIDOMIDE
     Indication: Plasma cell myeloma
     Dosage: DOSE: 4 MG; FREQ: 21 DAYS OF 28 DAYS CYCLE
     Route: 048

REACTIONS (1)
  - Drug hypersensitivity [Unknown]
